FAERS Safety Report 8188798-0 (Version None)
Quarter: 2012Q1

REPORT INFORMATION
  Report Type: 
  Country: None (occurrence: None)
  Receive Date: 20120306
  Receipt Date: 20120221
  Transmission Date: 20120608
  Serious: Yes (Hospitalization)
  Sender: FDA-Public Use
  Company Number: TW-WATSON-2012-03646

PATIENT
  Age: 79 Year
  Sex: Female

DRUGS (3)
  1. ALBUTEROL [Suspect]
     Indication: ASTHMA
     Dosage: 2 MG, TID
     Route: 048
  2. IPRATROPIUM BROMIDE [Suspect]
     Indication: ASTHMA
     Dosage: NEBULIZED BRONCHODILATOR
     Route: 050
  3. TERBUTALINE [Suspect]
     Indication: ASTHMA
     Dosage: NEBULIZED BROCHODILATOR
     Route: 050

REACTIONS (1)
  - VENTRICULAR TACHYARRHYTHMIA [None]
